FAERS Safety Report 4594658-4 (Version None)
Quarter: 2005Q1

REPORT INFORMATION
  Report Type: 
  Country: None (occurrence: None)
  Receive Date: 20050223
  Receipt Date: 20050215
  Transmission Date: 20050727
  Serious: Yes (Death, Hospitalization)
  Sender: FDA-Public Use
  Company Number: 163-20785-04120504

PATIENT
  Age: 72 Year
  Sex: Female

DRUGS (6)
  1. THALOMID [Suspect]
     Indication: MULTIPLE MYELOMA
     Dosage: 400 MG, QD, ORAL
     Route: 048
     Dates: start: 20050110, end: 20050201
  2. THALOMID [Suspect]
     Indication: MULTIPLE MYELOMA
     Dosage: 400 MG, QD, ORAL
     Route: 048
     Dates: start: 20041201
  3. ACETYLSALICYLIC ACID SRT [Concomitant]
  4. PERCOCET [Concomitant]
  5. INSULIN [Concomitant]
  6. DURAGESIC (FENTANYL) [Concomitant]

REACTIONS (4)
  - BLOOD POTASSIUM DECREASED [None]
  - PANCYTOPENIA [None]
  - PNEUMONIA [None]
  - SEPSIS [None]
